FAERS Safety Report 5301993-0 (Version None)
Quarter: 2007Q2

REPORT INFORMATION
  Report Type: 
  Country: None (occurrence: None)
  Receive Date: 20070416
  Receipt Date: 20070416
  Transmission Date: 20071010
  Serious: No
  Sender: FDA-Public Use
  Company Number: None

PATIENT
  Age: 78 Year
  Sex: Female
  Weight: 72.5755 kg

DRUGS (1)
  1. MERREM 2GM ASTRAZENECA [Suspect]
     Indication: INFECTED SKIN ULCER
     Dosage: 2GM  EVERY 12 HOURS  PAC
     Dates: start: 20070408, end: 20070408

REACTIONS (1)
  - RASH [None]
